FAERS Safety Report 9811064 (Version 1)
Quarter: 2014Q1

REPORT INFORMATION
  Report Type: Spontaneous
  Country: US (occurrence: US)
  Receive Date: 20140110
  Receipt Date: 20140110
  Transmission Date: 20141002
  Serious: Yes (Hospitalization)
  Sender: FDA-Public Use
  Company Number: US-SANOFI-AVENTIS-2013SA006201

PATIENT
  Age: 44 Year
  Sex: Male
  Weight: 109.7 kg

DRUGS (7)
  1. PLAVIX [Suspect]
     Route: 048
     Dates: start: 20090118
  2. SPIRONOLACTONE [Concomitant]
  3. IMDUR [Concomitant]
  4. SYNTHROID [Concomitant]
  5. METOPROLOL [Concomitant]
  6. COZAAR [Concomitant]
  7. ASPIRIN [Concomitant]

REACTIONS (1)
  - Myocardial infarction [Unknown]
